FAERS Safety Report 6979398-6 (Version None)
Quarter: 2010Q3

REPORT INFORMATION
  Report Type: 
  Country: None (occurrence: None)
  Receive Date: 20100910
  Receipt Date: 20100910
  Transmission Date: 20110219
  Serious: Yes (Death)
  Sender: FDA-Public Use
  Company Number: None

PATIENT
  Sex: Male
  Weight: 81.6475 kg

DRUGS (2)
  1. ACTOS [Suspect]
     Indication: TYPE 2 DIABETES MELLITUS
     Dosage: 15 MG ONE TAB EVERY AM ONCE A DAY BY MOUTH
     Route: 048
     Dates: start: 20080118
  2. ACTOS [Suspect]
     Indication: TYPE 2 DIABETES MELLITUS
     Dosage: 15 MG ONE TAB EVERY AM ONCE A DAY BY MOUTH
     Route: 048
     Dates: start: 20080215

REACTIONS (1)
  - ACUTE MYOCARDIAL INFARCTION [None]
